FAERS Safety Report 11354112 (Version 1)
Quarter: 2015Q3

REPORT INFORMATION
  Report Type: Spontaneous
  Country: US (occurrence: US)
  Receive Date: 20150807
  Receipt Date: 20150807
  Transmission Date: 20151125
  Serious: No
  Sender: FDA-Public Use
  Company Number: US-JNJFOC-20150213277

PATIENT
  Age: 58 Year
  Sex: Male
  Weight: 111.13 kg

DRUGS (3)
  1. SUDAFED 24 HOUR [Suspect]
     Active Substance: PSEUDOEPHEDRINE HYDROCHLORIDE
     Indication: RHINORRHOEA
     Route: 048
     Dates: start: 20150211, end: 20150211
  2. SUDAFED 24 HOUR [Suspect]
     Active Substance: PSEUDOEPHEDRINE HYDROCHLORIDE
     Indication: NASOPHARYNGITIS
     Route: 048
     Dates: start: 20150211, end: 20150211
  3. MULTIVITAMINS [Concomitant]
     Active Substance: VITAMINS
     Route: 065

REACTIONS (1)
  - Coordination abnormal [Recovered/Resolved]

NARRATIVE: CASE EVENT DATE: 20150211
